FAERS Safety Report 25200564 (Version 3)
Quarter: 2025Q3

REPORT INFORMATION
  Report Type: Spontaneous
  Country: JP (occurrence: JP)
  Receive Date: 20250415
  Receipt Date: 20250903
  Transmission Date: 20251021
  Serious: Yes (Hospitalization)
  Sender: MERCK SHARP & DOHME LLC
  Company Number: JP-009507513-2275711

PATIENT
  Age: 43 Year
  Sex: Female

DRUGS (4)
  1. KEYTRUDA [Suspect]
     Active Substance: PEMBROLIZUMAB
     Indication: Cervix carcinoma
     Route: 041
     Dates: start: 202410, end: 202410
  2. PACLITAXEL [Concomitant]
     Active Substance: PACLITAXEL
     Dates: start: 202410, end: 202410
  3. CARBOPLATIN [Concomitant]
     Active Substance: CARBOPLATIN
     Dates: start: 202410, end: 202410
  4. BEVACIZUMAB [Concomitant]
     Active Substance: BEVACIZUMAB

REACTIONS (2)
  - Immune-mediated dermatitis [Recovered/Resolved]
  - Dermatitis allergic [Recovered/Resolved]

NARRATIVE: CASE EVENT DATE: 20241001
